FAERS Safety Report 10412742 (Version 5)
Quarter: 2014Q4

REPORT INFORMATION
  Report Type: Spontaneous
  Country: US (occurrence: US)
  Receive Date: 20140827
  Receipt Date: 20141022
  Transmission Date: 20150528
  Serious: Yes (Other)
  Sender: FDA-Public Use
  Company Number: US-PFIZER INC-2014233944

PATIENT
  Age: 79 Year
  Sex: Male
  Weight: 71 kg

DRUGS (4)
  1. LATANOPROST. [Suspect]
     Active Substance: LATANOPROST
     Dosage: 1 GTT IN EACH EYE, DAILY
     Route: 047
     Dates: start: 2014
  2. LATANOPROST. [Suspect]
     Active Substance: LATANOPROST
     Indication: GLAUCOMA
     Dosage: UNK
     Route: 047
     Dates: start: 20140804
  3. VITAMIN C [Concomitant]
     Active Substance: ASCORBIC ACID
     Dosage: UNK
  4. LATANOPROST. [Suspect]
     Active Substance: LATANOPROST
     Indication: GLAUCOMA
     Dosage: 1 GTT EACH EYE), DAILY
     Route: 047
     Dates: start: 2013, end: 20140806

REACTIONS (14)
  - Product tampering [Unknown]
  - Ocular hyperaemia [Recovered/Resolved]
  - Intraocular pressure decreased [Unknown]
  - Weight decreased [Unknown]
  - Malaise [Unknown]
  - Product contamination [Unknown]
  - Eye pain [Recovered/Resolved]
  - pH body fluid increased [Unknown]
  - Arrhythmia [Recovered/Resolved]
  - Vision blurred [Recovered/Resolved]
  - Eye irritation [Recovered/Resolved]
  - Foreign body sensation in eyes [Recovered/Resolved]
  - Product substitution issue [Unknown]
  - Musculoskeletal pain [Unknown]

NARRATIVE: CASE EVENT DATE: 201408
